FAERS Safety Report 7948531-1 (Version None)
Quarter: 2011Q4

REPORT INFORMATION
  Report Type: 
  Country: None (occurrence: None)
  Receive Date: 20111125
  Receipt Date: 20111110
  Transmission Date: 20120403
  Serious: Yes (Other)
  Sender: FDA-Public Use
  Company Number: GGEL20111001383

PATIENT
  Age: 41 Year
  Sex: Female

DRUGS (1)
  1. VERAPAMIL [Suspect]
     Indication: PRODUCT USED FOR UNKNOWN INDICATION
     Dosage: 19200 MILLIGRAM, 80 IN 1 ONCE

REACTIONS (34)
  - HAEMATOCRIT DECREASED [None]
  - ELECTROCARDIOGRAM T WAVE INVERSION [None]
  - METABOLIC ACIDOSIS [None]
  - RENAL FAILURE [None]
  - INTENTIONAL OVERDOSE [None]
  - ELECTROCARDIOGRAM NORMAL [None]
  - OXYGEN SATURATION DECREASED [None]
  - TOXICITY TO VARIOUS AGENTS [None]
  - NO THERAPEUTIC RESPONSE [None]
  - ARTERIAL THROMBOSIS LIMB [None]
  - CONTINUOUS HAEMODIAFILTRATION [None]
  - PNEUMATOSIS INTESTINALIS [None]
  - COLITIS ISCHAEMIC [None]
  - VENTRICULAR EXTRASYSTOLES [None]
  - HYPOXIA [None]
  - HYPOTENSION [None]
  - ABDOMINAL DISTENSION [None]
  - BLOOD CALCIUM INCREASED [None]
  - CATHETER SITE RELATED REACTION [None]
  - STAPHYLOCOCCUS TEST POSITIVE [None]
  - SUICIDE ATTEMPT [None]
  - SINUS TACHYCARDIA [None]
  - LETHARGY [None]
  - FLUID OVERLOAD [None]
  - MULTI-ORGAN FAILURE [None]
  - LEUKOCYTOSIS [None]
  - ELECTROCARDIOGRAM POOR R-WAVE PROGRESSION [None]
  - SINUS BRADYCARDIA [None]
  - BRADYCARDIA [None]
  - LEFT VENTRICULAR HYPERTROPHY [None]
  - ATRIOVENTRICULAR BLOCK COMPLETE [None]
  - PYREXIA [None]
  - ACUTE RESPIRATORY FAILURE [None]
  - VENTRICULAR ARRHYTHMIA [None]
